FAERS Safety Report 11279479 (Version 4)
Quarter: 2015Q4

REPORT INFORMATION
  Report Type: Report from Study
  Country: US (occurrence: None)
  Receive Date: 20150715
  Receipt Date: 20151014
  Transmission Date: 20160304
  Serious: Yes (Other)
  Sender: FDA-Public Use
  Company Number: ADR-2015-01311

PATIENT
  Age: 34 Year
  Sex: Female
  Weight: 59 kg

DRUGS (2)
  1. BACLOFEN INTRATHECAL (2000 MCG/ML) [Suspect]
     Active Substance: BACLOFEN
     Indication: MUSCLE SPASTICITY
     Dosage: 1050 MCG/DAY
  2. GILENYA [Suspect]
     Active Substance: FINGOLIMOD HYDROCHLORIDE
     Indication: MULTIPLE SCLEROSIS
     Dosage: 0.5 MG, QD, ORAL

REACTIONS (43)
  - Urinary tract infection [None]
  - Muscular weakness [None]
  - Full blood count increased [None]
  - Fatigue [None]
  - Bacterial test positive [None]
  - Urinary incontinence [None]
  - Red blood cell count decreased [None]
  - Polymerase chain reaction positive [None]
  - Gait disturbance [None]
  - Urine abnormality [None]
  - Muscle twitching [None]
  - Discomfort [None]
  - Lymphopenia [None]
  - Leukopenia [None]
  - Demyelination [None]
  - Blood potassium decreased [None]
  - Eructation [None]
  - Insomnia [None]
  - Carbon dioxide increased [None]
  - Urine analysis abnormal [None]
  - Nuclear magnetic resonance imaging abnormal [None]
  - Blood urine present [None]
  - Abdominal pain [None]
  - Urobilinogen urine increased [None]
  - Pyrexia [None]
  - Depression [None]
  - Pruritus [None]
  - Lymphocyte count decreased [None]
  - Muscle spasms [None]
  - White blood cell count decreased [None]
  - Hypertonic bladder [None]
  - Eosinophil percentage increased [None]
  - Nitrite urine present [None]
  - Arthralgia [None]
  - Muscle spasticity [None]
  - Blood pressure decreased [None]
  - Vision blurred [None]
  - Dysarthria [None]
  - Urine leukocyte esterase positive [None]
  - Haemoglobin decreased [None]
  - Monocyte percentage increased [None]
  - Blood chloride decreased [None]
  - Blood creatine phosphokinase increased [None]
